FAERS Safety Report 11216038 (Version 1)
Quarter: 2015Q2

REPORT INFORMATION
  Report Type: Spontaneous
  Country: DE (occurrence: DE)
  Receive Date: 20150624
  Receipt Date: 20150624
  Transmission Date: 20150821
  Serious: Yes (Death, Other)
  Sender: FDA-Public Use
  Company Number: DE-SA-2015SA086782

PATIENT
  Age: 78 Year
  Sex: Female
  Weight: 86 kg

DRUGS (6)
  1. NOVAMIN [Concomitant]
     Active Substance: PROCHLORPERAZINE MALEATE
     Indication: ANALGESIC THERAPY
     Dosage: DOSE: 4X2
     Dates: start: 20150430
  2. CLEXANE MULTIDOSE [Suspect]
     Active Substance: ENOXAPARIN SODIUM
     Indication: PROPHYLAXIS
     Route: 058
     Dates: start: 20150428
  3. IRBESARTAN. [Concomitant]
     Active Substance: IRBESARTAN
     Dosage: 1-0-0
  4. OMNIMED LECITHIN PLUS [Concomitant]
     Dosage: DOSE: 0-1-0
  5. OXYCODONE [Concomitant]
     Active Substance: OXYCODONE
     Dosage: DOSE: 2X1
  6. ALENDRONIC ACID [Concomitant]
     Active Substance: ALENDRONIC ACID

REACTIONS (2)
  - Brain injury [Fatal]
  - Pulmonary embolism [Unknown]

NARRATIVE: CASE EVENT DATE: 20150502
